FAERS Safety Report 13182165 (Version 1)
Quarter: 2017Q1

REPORT INFORMATION
  Report Type: Report from Study
  Country: None (occurrence: US)
  Receive Date: 20170202
  Receipt Date: 20170202
  Transmission Date: 20170428
  Serious: Yes (Hospitalization, Other)
  Sender: FDA-Public Use
  Company Number: US-ABBVIE-16K-163-1807785-00

PATIENT
  Age: 30 Year
  Sex: Female
  Weight: 56.75 kg

DRUGS (7)
  1. BENTYL [Concomitant]
     Active Substance: DICYCLOMINE HYDROCHLORIDE
     Indication: CROHN^S DISEASE
     Route: 065
  2. COMPAZINE [Concomitant]
     Active Substance: PROCHLORPERAZINE MALEATE
     Indication: NAUSEA
     Route: 065
  3. VICODIN [Concomitant]
     Active Substance: ACETAMINOPHEN\HYDROCODONE BITARTRATE
     Indication: PAIN
     Route: 065
  4. BUSPAR [Concomitant]
     Active Substance: BUSPIRONE HYDROCHLORIDE
     Indication: DEPRESSION
     Route: 065
  5. REGLAN [Concomitant]
     Active Substance: METOCLOPRAMIDE HYDROCHLORIDE
     Indication: GASTROOESOPHAGEAL REFLUX DISEASE
     Route: 065
  6. HUMIRA [Suspect]
     Active Substance: ADALIMUMAB
     Indication: CROHN^S DISEASE
     Route: 058
     Dates: start: 201607, end: 201612
  7. PERCOCET [Concomitant]
     Active Substance: ACETAMINOPHEN\OXYCODONE HYDROCHLORIDE
     Indication: PAIN
     Route: 065

REACTIONS (15)
  - Feeling hot [Recovered/Resolved]
  - Vomiting [Recovered/Resolved]
  - Enteritis [Not Recovered/Not Resolved]
  - Cholelithiasis [Not Recovered/Not Resolved]
  - Feeling hot [Recovered/Resolved]
  - Abdominal pain upper [Recovered/Resolved]
  - Abdominal pain upper [Recovered/Resolved]
  - Eructation [Not Recovered/Not Resolved]
  - Exposure during pregnancy [Unknown]
  - Cold sweat [Recovered/Resolved]
  - Cold sweat [Recovered/Resolved]
  - Eructation [Recovered/Resolved]
  - Colitis [Not Recovered/Not Resolved]
  - Vomiting [Recovered/Resolved]
  - Normal newborn [Unknown]

NARRATIVE: CASE EVENT DATE: 20160919
